FAERS Safety Report 7582231-5 (Version None)
Quarter: 2011Q2

REPORT INFORMATION
  Report Type: 
  Country: None (occurrence: None)
  Receive Date: 20110622
  Receipt Date: 20110601
  Transmission Date: 20111010
  Serious: Yes (Death, Hospitalization)
  Sender: FDA-Public Use
  Company Number: SP03752

PATIENT
  Age: 67 Year
  Sex: Male

DRUGS (2)
  1. VISICOL [Suspect]
     Indication: BOWEL PREPARATION
     Dosage: 50 GM, ORAL
     Route: 048
     Dates: start: 20110520, end: 20110520
  2. SODIUM PICOSULFATE [Suspect]
     Indication: BOWEL PREPARATION
     Dosage: 20 MILLIGRAM/MILLILITERS, ORAL
     Route: 048
     Dates: start: 20110519, end: 20110519

REACTIONS (1)
  - INTESTINAL PERFORATION [None]
